FAERS Safety Report 7553022-6 (Version None)
Quarter: 2011Q2

REPORT INFORMATION
  Report Type: 
  Country: None (occurrence: None)
  Receive Date: 20110616
  Receipt Date: 20110610
  Transmission Date: 20111010
  Serious: Yes (Hospitalization)
  Sender: FDA-Public Use
  Company Number: BR-MEDIMMUNE-MEDI-0013277

PATIENT
  Sex: Female
  Weight: 7.2 kg

DRUGS (1)
  1. SYNAGIS [Suspect]
     Route: 030
     Dates: start: 20110510, end: 20110510

REACTIONS (4)
  - INFLUENZA [None]
  - BRONCHIOLITIS [None]
  - LUNG INFECTION [None]
  - PNEUMONIA [None]
